FAERS Safety Report 6958553-5 (Version None)
Quarter: 2010Q3

REPORT INFORMATION
  Report Type: 
  Country: None (occurrence: None)
  Receive Date: 20100831
  Receipt Date: 20100824
  Transmission Date: 20110219
  Serious: Yes (Hospitalization)
  Sender: FDA-Public Use
  Company Number: JP-MERCK-1008USA03892

PATIENT
  Age: 65 Year
  Sex: Female

DRUGS (3)
  1. PEPCID [Suspect]
     Route: 048
  2. AMOXICILLIN [Suspect]
     Route: 048
     Dates: start: 20090512
  3. REBAMIPIDE [Concomitant]
     Route: 065

REACTIONS (2)
  - DUODENAL ULCER [None]
  - OESOPHAGITIS [None]
